FAERS Safety Report 23774862 (Version 9)
Quarter: 2025Q2

REPORT INFORMATION
  Report Type: Report from Study
  Country: CA (occurrence: CA)
  Receive Date: 20240423
  Receipt Date: 20250609
  Transmission Date: 20250717
  Serious: Yes (Hospitalization, Other)
  Sender: NOVARTIS
  Company Number: CA-002147023-NVSC2022CA171307

PATIENT
  Age: 62 Year
  Sex: Female
  Weight: 40 kg

DRUGS (8)
  1. KISQALI [Suspect]
     Active Substance: RIBOCICLIB SUCCINATE
     Indication: Breast cancer metastatic
     Dosage: 600 MG, QD (DAILY FOR 21 DAYS, 7 DAYS OFF, 28-DAY CYCLE))
     Route: 048
     Dates: start: 20220723
  2. KISQALI [Suspect]
     Active Substance: RIBOCICLIB SUCCINATE
     Dosage: 400 MG, QD
     Route: 048
     Dates: start: 20250604
  3. METHADONE [Concomitant]
     Active Substance: METHADONE HYDROCHLORIDE
     Indication: Product used for unknown indication
     Dosage: 2.5 MG, BID + PRN
     Route: 065
  4. SYNTHROID [Concomitant]
     Active Substance: LEVOTHYROXINE SODIUM
     Indication: Product used for unknown indication
     Route: 065
  5. PERINDOPRIL [Concomitant]
     Active Substance: PERINDOPRIL
     Indication: Product used for unknown indication
     Route: 065
  6. AMLODIPINE [Concomitant]
     Active Substance: AMLODIPINE BESYLATE
     Indication: Product used for unknown indication
     Route: 065
  7. ACETAMINOPHEN [Concomitant]
     Active Substance: ACETAMINOPHEN
     Indication: Product used for unknown indication
     Route: 065
  8. LASIX [Concomitant]
     Active Substance: FUROSEMIDE
     Indication: Product used for unknown indication
     Route: 065

REACTIONS (17)
  - Dyspepsia [Unknown]
  - Muscle spasms [Unknown]
  - Vomiting [Unknown]
  - Electrocardiogram QT prolonged [Unknown]
  - Neutropenia [Unknown]
  - Fatigue [Unknown]
  - White blood cell count decreased [Unknown]
  - Wrong dose [Unknown]
  - Constipation [Unknown]
  - Pruritus [Unknown]
  - Nausea [Recovered/Resolved]
  - Pain [Unknown]
  - Peripheral swelling [Unknown]
  - Electrocardiogram abnormal [Unknown]
  - Blood test abnormal [Unknown]
  - Full blood count decreased [Unknown]
  - Drug intolerance [Unknown]

NARRATIVE: CASE EVENT DATE: 20240326
